FAERS Safety Report 8525936-1 (Version None)
Quarter: 2012Q3

REPORT INFORMATION
  Report Type: 
  Country: None (occurrence: None)
  Receive Date: 20120720
  Receipt Date: 20120717
  Transmission Date: 20120928
  Serious: No
  Sender: FDA-Public Use
  Company Number: US-PFIZER INC-2012140291

PATIENT
  Age: 82 Year
  Sex: Female
  Weight: 77.098 kg

DRUGS (3)
  1. ASPIRIN [Concomitant]
     Dosage: 81 MG, UNK
  2. PREMARIN [Suspect]
     Indication: UTERINE PROLAPSE
     Dosage: UNK
     Route: 067
     Dates: start: 20110101
  3. INSULIN [Concomitant]
     Indication: DIABETES MELLITUS
     Dosage: UNK

REACTIONS (5)
  - COUNTERFEIT DRUG ADMINISTERED [None]
  - MALAISE [None]
  - OFF LABEL USE [None]
  - VAGINAL DISCHARGE [None]
  - RASH [None]
